FAERS Safety Report 8059637-3 (Version None)
Quarter: 2012Q1

REPORT INFORMATION
  Report Type: 
  Country: None (occurrence: None)
  Receive Date: 20120120
  Receipt Date: 20120110
  Transmission Date: 20120608
  Serious: Yes (Disabling, Other)
  Sender: FDA-Public Use
  Company Number: PHHY2011BE109215

PATIENT
  Sex: Female

DRUGS (8)
  1. SANDOSTATIN LAR [Suspect]
     Indication: NEUROENDOCRINE TUMOUR
     Dosage: UNK UKN, UNK
  2. IRBESARTAN AND HYDROCHLOROTHIAZIDE [Concomitant]
     Dosage: IBESARTAN 300MG, HYDROCHLORTHIAZIDE 25MG ONCE DAILY
     Route: 048
  3. SANDOSTATIN LAR [Suspect]
     Dosage: 30 MG (EVERY TWO WEEKS),
     Dates: start: 20111017
  4. NEBIVOLOL [Concomitant]
     Dosage: 5 MG, HALF DAILY EVERY TWO DAYS
     Route: 048
  5. SANDOSTATIN LAR [Suspect]
     Dosage: 30 MG (EVERY THREE WEEKS)
  6. LERCANIDIPINE [Concomitant]
     Dosage: DAILY
     Route: 048
  7. ALPRAZOLAM [Concomitant]
     Dosage: 0.25 MG, DAILY
     Route: 048
  8. SANDOSTATIN LAR [Suspect]
     Dosage: 30 MG (EVERY TWO WEEKS),
     Dates: start: 20111129

REACTIONS (11)
  - SENSE OF OPPRESSION [None]
  - HEADACHE [None]
  - WEIGHT DECREASED [None]
  - HEPATOMEGALY [None]
  - PYREXIA [None]
  - CONSTIPATION [None]
  - FATIGUE [None]
  - NIGHT SWEATS [None]
  - GASTROINTESTINAL DISORDER [None]
  - DYSPNOEA [None]
  - DYSPEPSIA [None]
